FAERS Safety Report 16002018 (Version 1)
Quarter: 2019Q1

REPORT INFORMATION
  Report Type: Spontaneous
  Country: AU (occurrence: AU)
  Receive Date: 20190225
  Receipt Date: 20190225
  Transmission Date: 20190418
  Serious: Yes (Other)
  Sender: FDA-Public Use
  Company Number: AU-PFIZER INC-2019058541

PATIENT
  Age: 32 Year
  Sex: Male

DRUGS (17)
  1. CLOZAPINE. [Suspect]
     Active Substance: CLOZAPINE
     Dosage: 625 MG, UNK
     Dates: start: 20160915
  2. OLANZAPINE. [Suspect]
     Active Substance: OLANZAPINE
     Dosage: 10 MG, DAILY
  3. AMISULPRIDE [Suspect]
     Active Substance: AMISULPRIDE
     Dosage: 200 MG, 2X/DAY
  4. CLOZAPINE. [Suspect]
     Active Substance: CLOZAPINE
     Dosage: 450 MG, DAILY
  5. ATORVASTATIN CALCIUM. [Suspect]
     Active Substance: ATORVASTATIN CALCIUM
     Dosage: 40 MG, DAILY
  6. CLOZAPINE. [Suspect]
     Active Substance: CLOZAPINE
     Dosage: 200 MG, DAILY
  7. CLOZAPINE. [Suspect]
     Active Substance: CLOZAPINE
     Indication: SCHIZOPHRENIA
     Dosage: UNK
     Route: 048
  8. CLOZAPINE. [Suspect]
     Active Substance: CLOZAPINE
     Dosage: 500 MG, DAILY
     Dates: start: 201702
  9. CLOZAPINE. [Suspect]
     Active Substance: CLOZAPINE
     Dosage: 625 MG, DAILY
     Dates: start: 20180220
  10. CLOZAPINE. [Suspect]
     Active Substance: CLOZAPINE
     Dosage: 325 MG, UNK
     Dates: start: 2018
  11. CLOZAPINE. [Suspect]
     Active Substance: CLOZAPINE
     Dosage: 600 MG, DAILY
     Dates: start: 20180212
  12. CLOZAPINE. [Suspect]
     Active Substance: CLOZAPINE
     Dosage: 425 MG, UNK
     Dates: start: 2018
  13. CLOZAPINE. [Suspect]
     Active Substance: CLOZAPINE
     Dosage: 500 MG, DAILY
  14. ARIPIPRAZOLE. [Suspect]
     Active Substance: ARIPIPRAZOLE
     Dosage: 20 MG, DAILY
  15. CLOZAPINE. [Suspect]
     Active Substance: CLOZAPINE
     Dosage: 500 MG, DAILY
     Dates: start: 201704
  16. CLOZAPINE. [Suspect]
     Active Substance: CLOZAPINE
     Dosage: 550 MG, DAILY
     Dates: start: 20180530
  17. ARIPIPRAZOLE. [Suspect]
     Active Substance: ARIPIPRAZOLE
     Dosage: 10 MG, DAILY
     Dates: start: 20170208

REACTIONS (23)
  - Aspartate aminotransferase increased [Unknown]
  - Blood creatinine decreased [Unknown]
  - Troponin increased [Unknown]
  - Cardiomyopathy [Unknown]
  - Pulmonary valve incompetence [Unknown]
  - Schizophrenia [Unknown]
  - Product dose omission [Unknown]
  - Mitral valve incompetence [Unknown]
  - Disease recurrence [Unknown]
  - Ejection fraction decreased [Unknown]
  - Blood creatine phosphokinase increased [Unknown]
  - Hyperlipidaemia [Unknown]
  - Ventricular hypokinesia [Unknown]
  - C-reactive protein increased [Unknown]
  - Somnolence [Unknown]
  - Aggression [Unknown]
  - Alanine aminotransferase increased [Unknown]
  - Sinus tachycardia [Unknown]
  - Diastolic dysfunction [Unknown]
  - Hypercholesterolaemia [Unknown]
  - Drug ineffective [Unknown]
  - Blood pressure increased [Unknown]
  - Urinary incontinence [Unknown]

NARRATIVE: CASE EVENT DATE: 2016
